FAERS Safety Report 5859225-0 (Version None)
Quarter: 2008Q3

REPORT INFORMATION
  Report Type: 
  Country: None (occurrence: None)
  Receive Date: 20080826
  Receipt Date: 20080826
  Transmission Date: 20090109
  Serious: Yes (Death)
  Sender: FDA-Public Use
  Company Number: None

PATIENT
  Age: 16 Year
  Sex: Female
  Weight: 60.3284 kg

DRUGS (2)
  1. CITALOPRAM HYDROBROMIDE [Suspect]
     Indication: SELF-MEDICATION
     Dosage: PO
     Route: 048
  2. TYLENOL (CAPLET) [Suspect]
     Dosage: PO
     Route: 048

REACTIONS (3)
  - DRUG TOXICITY [None]
  - SELF-MEDICATION [None]
  - SEROTONIN SYNDROME [None]
